FAERS Safety Report 13912969 (Version 5)
Quarter: 2018Q1

REPORT INFORMATION
  Report Type: Spontaneous
  Country: US (occurrence: US)
  Receive Date: 20170828
  Receipt Date: 20180328
  Transmission Date: 20180508
  Serious: Yes (Death, Hospitalization)
  Sender: FDA-Public Use
  Company Number: US-ACTELION-A-US2017-158653

PATIENT
  Age: 85 Year
  Sex: Female
  Weight: 54.42 kg

DRUGS (3)
  1. TYVASO [Concomitant]
     Active Substance: TREPROSTINIL
     Dosage: 12 BREATHS, QID
     Dates: start: 2015, end: 20180209
  2. TRACLEER [Suspect]
     Active Substance: BOSENTAN
     Indication: PULMONARY HYPERTENSION
     Dosage: 125 MG, BID
     Route: 048
     Dates: start: 2010, end: 20180209
  3. ADCIRCA [Concomitant]
     Active Substance: TADALAFIL
     Dosage: 40 MG, QD
     Dates: start: 2010, end: 20180209

REACTIONS (10)
  - Disease progression [Fatal]
  - Abdominal pain [Recovered/Resolved]
  - Ejection fraction decreased [Unknown]
  - Left atrial dilatation [Unknown]
  - Gastrointestinal infection [Unknown]
  - Dehydration [Recovered/Resolved]
  - Infection [Unknown]
  - Diverticulitis [Recovered/Resolved]
  - Pulmonary oedema [Unknown]
  - Mitral valve incompetence [Unknown]

NARRATIVE: CASE EVENT DATE: 20170818
